FAERS Safety Report 10379797 (Version 1)
Quarter: 2014Q3

REPORT INFORMATION
  Report Type: Spontaneous
  Country: US (occurrence: US)
  Receive Date: 20140812
  Receipt Date: 20140812
  Transmission Date: 20150326
  Serious: Yes (Hospitalization, Other)
  Sender: FDA-Public Use
  Company Number: US-009507513-1408USA005382

PATIENT
  Sex: Female
  Weight: 69.39 kg

DRUGS (3)
  1. PULMICORT TURBUHALER [Concomitant]
     Active Substance: BUDESONIDE
     Indication: ASTHMA
     Dosage: 180 MICROGRAM/PUFF, 1 PUFF BID
     Route: 055
  2. SINGULAIR [Concomitant]
     Active Substance: MONTELUKAST SODIUM
     Indication: ASTHMA
     Dosage: 10 MG, QD
     Route: 048
  3. NUVARING [Suspect]
     Active Substance: ETHINYL ESTRADIOL\ETONOGESTREL
     Indication: CONTRACEPTION
     Dosage: AS DIRECTED
     Route: 067
     Dates: start: 20130816, end: 20131009

REACTIONS (20)
  - Iron deficiency anaemia [Recovered/Resolved]
  - Gastroenteritis [Unknown]
  - Urinary tract infection [Unknown]
  - Diarrhoea [Unknown]
  - Road traffic accident [Unknown]
  - Pulmonary embolism [Unknown]
  - Skin papilloma [Unknown]
  - Pyrexia [Unknown]
  - Contusion [Unknown]
  - Vomiting [Unknown]
  - Gastrointestinal haemorrhage [Unknown]
  - Diarrhoea [Unknown]
  - Nausea [Unknown]
  - Pelvic pain [Unknown]
  - Headache [Unknown]
  - Vomiting [Unknown]
  - Muscle strain [Unknown]
  - Tonsillectomy [Unknown]
  - Sciatica [Unknown]
  - Nausea [Unknown]

NARRATIVE: CASE EVENT DATE: 20131007
